FAERS Safety Report 5536855-7 (Version None)
Quarter: 2007Q4

REPORT INFORMATION
  Report Type: 
  Country: None (occurrence: None)
  Receive Date: 20071206
  Receipt Date: 20061113
  Transmission Date: 20080405
  Serious: Yes (Hospitalization)
  Sender: FDA-Public Use
  Company Number: US-AMGEN-US200236

PATIENT
  Sex: Female

DRUGS (2)
  1. ENBREL [Suspect]
     Indication: RHEUMATOID ARTHRITIS
     Route: 058
     Dates: start: 19970101
  2. METHOTREXATE [Concomitant]
     Dates: start: 19930101

REACTIONS (7)
  - ABDOMINAL TENDERNESS [None]
  - BACK PAIN [None]
  - BREAST CANCER [None]
  - CONDITION AGGRAVATED [None]
  - INJECTION SITE BRUISING [None]
  - INJECTION SITE IRRITATION [None]
  - RHEUMATOID ARTHRITIS [None]
